FAERS Safety Report 17718847 (Version 3)
Quarter: 2020Q3

REPORT INFORMATION
  Report Type: Spontaneous
  Country: US (occurrence: US)
  Receive Date: 20200428
  Receipt Date: 20200701
  Transmission Date: 20201102
  Serious: Yes (Other)
  Sender: FDA-Public Use
  Company Number: US-PFIZER INC-2020169182

PATIENT
  Age: 40 Year
  Sex: Female

DRUGS (9)
  1. KLONOPIN [Concomitant]
     Active Substance: CLONAZEPAM
     Dosage: 0.5 MG
  2. XELJANZ XR [Suspect]
     Active Substance: TOFACITINIB CITRATE
     Indication: RHEUMATOID ARTHRITIS
     Dosage: 11 MG, DAILY
     Route: 048
  3. DOXYCYCLINE HYCLATE. [Concomitant]
     Active Substance: DOXYCYCLINE HYCLATE
     Indication: ROSACEA
     Dosage: 50 MG
  4. LO LOESTRIN FE [Concomitant]
     Active Substance: ETHINYL ESTRADIOL\NORETHINDRONE ACETATE
     Dosage: UNK (1.5?30(21))
  5. TYLENOL [Concomitant]
     Active Substance: ACETAMINOPHEN
     Dosage: 325 MG
  6. METROGEL [Concomitant]
     Active Substance: METRONIDAZOLE
     Dosage: UNK
  7. VOLTAREN [Concomitant]
     Active Substance: DICLOFENAC SODIUM
     Dosage: UNK
  8. DEXILANT [Concomitant]
     Active Substance: DEXLANSOPRAZOLE
     Indication: BLOOD PRESSURE MEASUREMENT
     Dosage: 30 MG
  9. LUNESTA [Concomitant]
     Active Substance: ESZOPICLONE
     Dosage: 3 MG

REACTIONS (12)
  - Epistaxis [Unknown]
  - Condition aggravated [Unknown]
  - Road traffic accident [Unknown]
  - Sinus disorder [Unknown]
  - Tenderness [Unknown]
  - Neck injury [Unknown]
  - Diverticulum [Unknown]
  - Oropharyngeal pain [Unknown]
  - Oesophageal pain [Unknown]
  - Nausea [Unknown]
  - Gastrooesophageal reflux disease [Unknown]
  - Illness [Unknown]

NARRATIVE: CASE EVENT DATE: 2018
